FAERS Safety Report 7640028-1 (Version None)
Quarter: 2011Q3

REPORT INFORMATION
  Report Type: 
  Country: None (occurrence: None)
  Receive Date: 20110727
  Receipt Date: 20110721
  Transmission Date: 20111222
  Serious: Yes (Other)
  Sender: FDA-Public Use
  Company Number: US-MERCK-1003USA00411

PATIENT
  Age: 55 Year
  Sex: Female
  Weight: 72 kg

DRUGS (8)
  1. FOSAMAX [Suspect]
     Indication: OSTEOPOROSIS
     Route: 048
     Dates: start: 19991001, end: 20060801
  2. FOSAMAX [Suspect]
     Route: 048
  3. FOSAMAX [Suspect]
     Route: 048
     Dates: start: 20010616, end: 20020222
  4. PREMARIN [Concomitant]
     Route: 065
     Dates: start: 19850101, end: 20080101
  5. FOSAMAX [Suspect]
     Route: 065
     Dates: start: 19960101
  6. FOSAMAX [Suspect]
     Route: 048
     Dates: start: 20000615, end: 20010329
  7. NEXIUM [Concomitant]
     Route: 065
     Dates: start: 19990101
  8. BONIVA [Suspect]
     Route: 065
     Dates: start: 20060701, end: 20080501

REACTIONS (40)
  - BUNION [None]
  - TONSILLAR DISORDER [None]
  - GALLBLADDER DISORDER [None]
  - BENIGN COLONIC NEOPLASM [None]
  - ORAL TORUS [None]
  - IRON DEFICIENCY ANAEMIA [None]
  - HIATUS HERNIA [None]
  - SALIVARY HYPERSECRETION [None]
  - OESOPHAGITIS [None]
  - CATARACT [None]
  - DIVERTICULUM INTESTINAL [None]
  - OSTEONECROSIS OF JAW [None]
  - ADENOIDAL DISORDER [None]
  - FALL [None]
  - EXOSTOSIS [None]
  - FUNGAL INFECTION [None]
  - TEMPOROMANDIBULAR JOINT SYNDROME [None]
  - RECTAL POLYP [None]
  - ANXIETY [None]
  - PERIODONTITIS [None]
  - DEPRESSION [None]
  - BONE DISORDER [None]
  - FOOT DEFORMITY [None]
  - DENTAL CARIES [None]
  - DUODENITIS [None]
  - EYE PAIN [None]
  - RIB FRACTURE [None]
  - SPINAL OSTEOARTHRITIS [None]
  - CHRONIC OBSTRUCTIVE PULMONARY DISEASE [None]
  - TENDON DISORDER [None]
  - GASTRITIS [None]
  - GASTRIC DISORDER [None]
  - TOOTH FRACTURE [None]
  - TOOTH ABSCESS [None]
  - MUSCLE CONTRACTURE [None]
  - ARTERIOSCLEROSIS CORONARY ARTERY [None]
  - HYPERTENSION [None]
  - CROHN'S DISEASE [None]
  - EROSIVE OESOPHAGITIS [None]
  - BONE RESORPTION TEST ABNORMAL [None]
